FAERS Safety Report 16110746 (Version 4)
Quarter: 2020Q2

REPORT INFORMATION
  Report Type: Spontaneous
  Country: DE (occurrence: DE)
  Receive Date: 20190325
  Receipt Date: 20200602
  Transmission Date: 20200713
  Serious: Yes (Death, Hospitalization, Other)
  Sender: FDA-Public Use
  Company Number: DE-BAUSCH-BL-2019-007831

PATIENT
  Age: 40 Year
  Sex: Female
  Weight: 108 kg

DRUGS (110)
  1. DEXAMETHASONE. [Suspect]
     Active Substance: DEXAMETHASONE
     Indication: METASTASES TO CENTRAL NERVOUS SYSTEM
     Route: 048
     Dates: start: 20180315, end: 20180315
  2. DEXAMETHASONE. [Suspect]
     Active Substance: DEXAMETHASONE
     Dosage: 0.5 DAYS
     Route: 048
     Dates: start: 20180325, end: 20180328
  3. IBUPROFEN. [Concomitant]
     Active Substance: IBUPROFEN
     Indication: GROIN PAIN
     Dosage: 0.5 DAYS
     Route: 048
     Dates: start: 20180321, end: 20180323
  4. LEVETIRACETAM. [Concomitant]
     Active Substance: LEVETIRACETAM
     Route: 048
     Dates: start: 20180415, end: 20180415
  5. CODEIN [Concomitant]
     Active Substance: CODEINE
     Route: 048
     Dates: start: 20180404, end: 20180404
  6. HYDROMORPHONE [Concomitant]
     Active Substance: HYDROMORPHONE
     Dosage: ONCE IN 0.5 DAYS
     Route: 048
     Dates: start: 20180405, end: 20180405
  7. HYDROMORPHONE [Concomitant]
     Active Substance: HYDROMORPHONE
     Dosage: ONCE IN 0.5 DAYS
     Route: 058
     Dates: start: 20180413, end: 20180413
  8. HYDROMORPHONE [Concomitant]
     Active Substance: HYDROMORPHONE
     Route: 058
     Dates: start: 20180413, end: 20180413
  9. TAVOR [Concomitant]
     Indication: RESTLESSNESS
     Route: 058
     Dates: start: 20180416, end: 20180416
  10. TAVOR [Concomitant]
     Route: 058
     Dates: start: 20180417, end: 20180417
  11. KALINOR [CITRIC ACID;POTASSIUM BICARBONATE;POTASSIUM CITRATE] [Concomitant]
     Active Substance: CITRIC ACID MONOHYDRATE\POTASSIUM BICARBONATE\POTASSIUM CITRATE
     Dosage: 0.5 DAYS
     Route: 048
     Dates: start: 20180324, end: 20180326
  12. LORAZEPAM. [Concomitant]
     Active Substance: LORAZEPAM
     Indication: RESTLESSNESS
     Route: 048
     Dates: start: 20180411, end: 20180411
  13. VOMEX [Concomitant]
     Active Substance: DIMENHYDRINATE
     Indication: NAUSEA
     Route: 042
     Dates: start: 20180321, end: 20180322
  14. THIAMIN [Concomitant]
     Active Substance: THIAMINE
     Indication: PRODUCT USED FOR UNKNOWN INDICATION
     Dosage: 0.5 DAYS
     Route: 048
     Dates: start: 20180411, end: 20180416
  15. VEMURAFENIB. [Suspect]
     Active Substance: VEMURAFENIB
     Dosage: 0.5 DAYS
     Route: 048
     Dates: start: 20180216, end: 20180216
  16. COBIMETINIB. [Suspect]
     Active Substance: COBIMETINIB
     Route: 048
     Dates: start: 20180308, end: 20180316
  17. DEXAMETHASONE. [Suspect]
     Active Substance: DEXAMETHASONE
     Indication: METASTASES TO CENTRAL NERVOUS SYSTEM
     Route: 058
     Dates: start: 20180417, end: 20180421
  18. PICOSALAX [Concomitant]
     Active Substance: ANHYDROUS CITRIC ACID\MAGNESIUM OXIDE\SODIUM PICOSULFATE
     Indication: CONSTIPATION
     Route: 048
     Dates: start: 20180401, end: 20180402
  19. HYDROMORPHONE [Concomitant]
     Active Substance: HYDROMORPHONE
     Dosage: ONCE IN 0.33 DAYS
     Route: 048
     Dates: start: 20180409, end: 20180409
  20. HYDROMORPHONE [Concomitant]
     Active Substance: HYDROMORPHONE
     Dosage: ONCE IN 0.5 DAYS
     Route: 048
     Dates: start: 20180415, end: 20180415
  21. TAVOR [Concomitant]
     Route: 058
     Dates: start: 20180415, end: 20180416
  22. METAMIZOLE [Concomitant]
     Active Substance: METAMIZOLE
     Indication: NECK PAIN
     Route: 048
     Dates: start: 20180404, end: 20180404
  23. RINGER^S1 [Concomitant]
     Route: 042
     Dates: start: 20180320, end: 20180323
  24. RINGER^S1 [Concomitant]
     Dosage: ONCE IN 0.5 DAYS
     Route: 042
     Dates: start: 20180324, end: 20180324
  25. CEFUROXIM [Concomitant]
     Active Substance: CEFUROXIME
     Dosage: 0.33 DAYS
     Route: 042
     Dates: start: 20180301, end: 20180304
  26. MAGNETRANS FORTE [Concomitant]
     Active Substance: MAGNESIUM OXIDE
     Indication: PRODUCT USED FOR UNKNOWN INDICATION
     Route: 048
     Dates: start: 20180318, end: 20180318
  27. PERFALGAN [Concomitant]
     Active Substance: ACETAMINOPHEN
     Indication: PRODUCT USED FOR UNKNOWN INDICATION
     Route: 042
     Dates: start: 20180301, end: 20180302
  28. PREDNISOLON [Suspect]
     Active Substance: PREDNISOLONE
     Route: 048
     Dates: start: 20180205, end: 20180211
  29. DEXAMETHASONE. [Suspect]
     Active Substance: DEXAMETHASONE
     Route: 048
     Dates: start: 20180412, end: 20180413
  30. DEXAMETHASONE. [Suspect]
     Active Substance: DEXAMETHASONE
     Route: 058
     Dates: start: 20180417, end: 20180421
  31. VEMURAFENIB. [Suspect]
     Active Substance: VEMURAFENIB
     Route: 048
     Dates: start: 20180220, end: 20180222
  32. IBUPROFEN. [Concomitant]
     Active Substance: IBUPROFEN
     Dosage: 0.5 DAYS
     Route: 048
     Dates: start: 20180324, end: 20180324
  33. LEVETIRACETAM. [Concomitant]
     Active Substance: LEVETIRACETAM
     Dosage: ONCE IN 0.5 DAYS
     Route: 058
     Dates: start: 20180415, end: 20180420
  34. DIMENHYDRINAT [Concomitant]
     Active Substance: DIMENHYDRINATE
     Dosage: 0.5 DAYS
     Route: 041
     Dates: start: 20180402, end: 20180402
  35. METAMIZOLE [Concomitant]
     Active Substance: METAMIZOLE
     Route: 058
     Dates: start: 20180417, end: 20180421
  36. RINGER^S1 [Concomitant]
     Indication: GENERAL PHYSICAL HEALTH DETERIORATION
     Route: 042
     Dates: start: 20180325, end: 20180325
  37. ONDASETRON [Concomitant]
     Active Substance: ONDANSETRON
     Indication: NAUSEA
     Route: 048
     Dates: start: 20180329, end: 20180329
  38. NOVALGIN [Concomitant]
     Dosage: 0.33 DAYS
     Route: 048
     Dates: start: 20180318, end: 20180318
  39. PREDNISOLON [Suspect]
     Active Substance: PREDNISOLONE
     Indication: PNEUMONITIS
     Route: 048
     Dates: start: 20180219, end: 20180225
  40. DEXAMETHASONE. [Suspect]
     Active Substance: DEXAMETHASONE
     Route: 048
     Dates: start: 20180208, end: 20180214
  41. DEXAMETHASONE. [Suspect]
     Active Substance: DEXAMETHASONE
     Route: 048
     Dates: start: 20180321, end: 20180321
  42. DEXAMETHASONE. [Suspect]
     Active Substance: DEXAMETHASONE
     Dosage: 0.5 DAYS
     Route: 048
     Dates: start: 20180317, end: 20180324
  43. COBIMETINIB. [Suspect]
     Active Substance: COBIMETINIB
     Indication: MALIGNANT MELANOMA
     Route: 048
     Dates: start: 20180220, end: 20180222
  44. COBIMETINIB. [Suspect]
     Active Substance: COBIMETINIB
     Route: 048
     Dates: start: 20180202, end: 20180215
  45. LEVETIRACETAM. [Concomitant]
     Active Substance: LEVETIRACETAM
     Dosage: ONCE IN 0.5 DAYS
     Route: 048
     Dates: start: 20171101, end: 20180323
  46. CODEIN [Concomitant]
     Active Substance: CODEINE
     Route: 065
     Dates: start: 20180329, end: 20180329
  47. PICOSALAX [Concomitant]
     Active Substance: ANHYDROUS CITRIC ACID\MAGNESIUM OXIDE\SODIUM PICOSULFATE
     Route: 048
     Dates: start: 20180409, end: 20180414
  48. HYDROMORPHONE [Concomitant]
     Active Substance: HYDROMORPHONE
     Dosage: ONCE IN 0.5 DAYS
     Route: 058
     Dates: start: 20180418, end: 20180419
  49. SULTANOL [Concomitant]
     Active Substance: ALBUTEROL SULFATE
     Indication: COUGH
     Dosage: ONCE IN 0.33 DAYS
     Route: 055
     Dates: start: 20180330, end: 20180404
  50. THYMIAN [Concomitant]
     Indication: COUGH
     Route: 048
     Dates: start: 20180327, end: 20180327
  51. METAMIZOLE [Concomitant]
     Active Substance: METAMIZOLE
     Route: 058
     Dates: start: 20180416, end: 20180418
  52. DALTEPARIN [Concomitant]
     Active Substance: DALTEPARIN
     Indication: PRODUCT USED FOR UNKNOWN INDICATION
     Route: 058
     Dates: start: 20180329, end: 20180415
  53. LEVOMEPROMAZINE [Concomitant]
     Active Substance: LEVOMEPROMAZINE
     Indication: RESTLESSNESS
     Route: 058
     Dates: start: 20180413, end: 20180413
  54. LORAZEPAM. [Concomitant]
     Active Substance: LORAZEPAM
     Indication: PRODUCT USED FOR UNKNOWN INDICATION
     Route: 048
     Dates: start: 20180417, end: 20180417
  55. VOMEX [Concomitant]
     Active Substance: DIMENHYDRINATE
     Route: 042
     Dates: start: 20180317, end: 20180317
  56. DEXAMETHASONE. [Suspect]
     Active Substance: DEXAMETHASONE
     Route: 048
     Dates: start: 20180202, end: 20180207
  57. VEMURAFENIB. [Suspect]
     Active Substance: VEMURAFENIB
     Route: 048
     Dates: start: 20180202, end: 20180215
  58. COBIMETINIB. [Suspect]
     Active Substance: COBIMETINIB
     Route: 048
     Dates: start: 20180121
  59. LEVETIRACETAM. [Concomitant]
     Active Substance: LEVETIRACETAM
     Indication: EPILEPSY
     Route: 048
     Dates: start: 20180324, end: 20180414
  60. LEVETIRACETAM. [Concomitant]
     Active Substance: LEVETIRACETAM
     Route: 058
     Dates: start: 20180421, end: 20180421
  61. CODEIN [Concomitant]
     Active Substance: CODEINE
     Indication: COUGH
     Route: 048
     Dates: start: 20180402, end: 20180402
  62. HYDROMORPHONE [Concomitant]
     Active Substance: HYDROMORPHONE
     Route: 058
     Dates: start: 20180416, end: 20180416
  63. ATROVENT [Concomitant]
     Active Substance: IPRATROPIUM BROMIDE
     Indication: COUGH
     Dosage: ONCE IN 0.33 DAYS
     Route: 055
     Dates: start: 20180330, end: 20180404
  64. PREDNISOLON [Suspect]
     Active Substance: PREDNISOLONE
     Route: 048
     Dates: start: 20180129, end: 20180204
  65. PREDNISOLON [Suspect]
     Active Substance: PREDNISOLONE
     Route: 048
     Dates: start: 20180212, end: 20180218
  66. PANTOPRAZOL [Concomitant]
     Active Substance: PANTOPRAZOLE SODIUM
     Indication: GASTROINTESTINAL DISORDER PROPHYLAXIS
     Route: 048
     Dates: start: 20170901, end: 20180415
  67. CODEIN [Concomitant]
     Active Substance: CODEINE
     Route: 048
     Dates: start: 20180331, end: 20180331
  68. HYDROMORPHONE [Concomitant]
     Active Substance: HYDROMORPHONE
     Route: 058
     Dates: start: 20180415, end: 20180415
  69. HYDROMORPHONE [Concomitant]
     Active Substance: HYDROMORPHONE
     Dosage: ONCE IN 0.04 DAYS
     Route: 058
     Dates: start: 20180418, end: 20180421
  70. HYDROMORPHONE [Concomitant]
     Active Substance: HYDROMORPHONE
     Route: 048
     Dates: start: 20180409, end: 20180409
  71. DIMENHYDRINAT [Concomitant]
     Active Substance: DIMENHYDRINATE
     Dosage: IN 0.33 DAYS
     Route: 048
     Dates: start: 20180405, end: 20180415
  72. THYMIAN [Concomitant]
     Indication: COUGH
     Dosage: 0.5 DAYS
     Route: 048
     Dates: start: 20180328, end: 20180328
  73. HEPARIN [Concomitant]
     Active Substance: HEPARIN SODIUM
     Indication: PRODUCT USED FOR UNKNOWN INDICATION
     Dosage: 0.5 DAYS
     Route: 058
     Dates: start: 20180319, end: 20180328
  74. METOCLOPRAMIDE. [Concomitant]
     Active Substance: METOCLOPRAMIDE
     Indication: NAUSEA
     Route: 048
     Dates: start: 20180318, end: 20180318
  75. DEXAMETHASONE. [Suspect]
     Active Substance: DEXAMETHASONE
     Route: 048
     Dates: start: 20180409, end: 20180411
  76. DEXAMETHASONE. [Suspect]
     Active Substance: DEXAMETHASONE
     Dosage: 0.5 DAYS
     Route: 048
     Dates: start: 20180412, end: 20180413
  77. VEMURAFENIB. [Suspect]
     Active Substance: VEMURAFENIB
     Indication: MALIGNANT MELANOMA
     Route: 048
     Dates: start: 20180216, end: 20180216
  78. VEMURAFENIB. [Suspect]
     Active Substance: VEMURAFENIB
     Route: 048
     Dates: start: 20180308, end: 20180316
  79. MIDAZOLAM. [Concomitant]
     Active Substance: MIDAZOLAM
     Route: 058
     Dates: start: 20180420, end: 20180420
  80. PICOSALAX [Concomitant]
     Active Substance: ANHYDROUS CITRIC ACID\MAGNESIUM OXIDE\SODIUM PICOSULFATE
     Route: 048
     Dates: start: 20180406, end: 20180415
  81. PICOSALAX [Concomitant]
     Active Substance: ANHYDROUS CITRIC ACID\MAGNESIUM OXIDE\SODIUM PICOSULFATE
     Route: 048
     Dates: start: 20180408, end: 20180408
  82. SYMBICORT [Concomitant]
     Active Substance: BUDESONIDE\FORMOTEROL FUMARATE DIHYDRATE
     Indication: ASTHMA
     Route: 048
     Dates: start: 20120101, end: 20180404
  83. HYDROMORPHONE [Concomitant]
     Active Substance: HYDROMORPHONE
     Indication: HEADACHE
     Dosage: ONCE IN 0.04 DAYS
     Route: 058
     Dates: start: 20180416, end: 20180417
  84. HYDROMORPHONE [Concomitant]
     Active Substance: HYDROMORPHONE
     Dosage: ONCE IN 0.33 DAYS
     Route: 048
     Dates: start: 20180406, end: 20180408
  85. HYDROMORPHONE [Concomitant]
     Active Substance: HYDROMORPHONE
     Dosage: ONCE IN 0.5 DAYS
     Route: 048
     Dates: start: 20180410, end: 20180414
  86. DIMENHYDRINAT [Concomitant]
     Active Substance: DIMENHYDRINATE
     Route: 048
     Dates: start: 20180330, end: 20180401
  87. DIMENHYDRINAT [Concomitant]
     Active Substance: DIMENHYDRINATE
     Route: 042
     Dates: start: 20180403, end: 20180403
  88. DIMENHYDRINAT [Concomitant]
     Active Substance: DIMENHYDRINATE
     Dosage: IN 0.5 DAYS
     Route: 048
     Dates: start: 20180404, end: 20180404
  89. KALINOR [CITRIC ACID;POTASSIUM BICARBONATE;POTASSIUM CITRATE] [Concomitant]
     Active Substance: CITRIC ACID MONOHYDRATE\POTASSIUM BICARBONATE\POTASSIUM CITRATE
     Indication: HYPOKALAEMIA
     Route: 048
     Dates: start: 20180404, end: 20180405
  90. KALINOR [CITRIC ACID;POTASSIUM BICARBONATE;POTASSIUM CITRATE] [Concomitant]
     Active Substance: CITRIC ACID MONOHYDRATE\POTASSIUM BICARBONATE\POTASSIUM CITRATE
     Dosage: 0.5 DAYS
     Route: 048
     Dates: start: 20180323, end: 20180323
  91. POTASSIUM [Concomitant]
     Active Substance: POTASSIUM
     Indication: HYPOKALAEMIA
     Dosage: (1)
     Route: 048
     Dates: start: 20180412, end: 20180416
  92. THYMIAN [Concomitant]
     Dosage: 0.33 DAYS
     Route: 048
     Dates: start: 20180329, end: 20180404
  93. METAMIZOLE [Concomitant]
     Active Substance: METAMIZOLE
     Indication: PYREXIA
     Route: 048
     Dates: start: 20180321, end: 20180321
  94. LORAZEPAM. [Concomitant]
     Active Substance: LORAZEPAM
     Dosage: IN 0.33 DAYS
     Route: 048
     Dates: start: 20180417, end: 20180417
  95. LEVOMEPROMAZINE [Concomitant]
     Active Substance: LEVOMEPROMAZINE
     Route: 058
     Dates: start: 20180408, end: 20180408
  96. PARACETAMOL [Concomitant]
     Active Substance: ACETAMINOPHEN
     Indication: PYREXIA
     Route: 042
     Dates: start: 20180321, end: 20190322
  97. PARACETAMOL [Concomitant]
     Active Substance: ACETAMINOPHEN
     Route: 042
     Dates: start: 20180318, end: 20180318
  98. CEFUROXIM [Concomitant]
     Active Substance: CEFUROXIME
     Route: 048
     Dates: start: 20180306
  99. DEXAMETHASONE. [Suspect]
     Active Substance: DEXAMETHASONE
     Indication: METASTASES TO CENTRAL NERVOUS SYSTEM
     Route: 048
     Dates: start: 20180414, end: 20180416
  100. DEXAMETHASONE. [Suspect]
     Active Substance: DEXAMETHASONE
     Route: 048
     Dates: start: 20180201, end: 20180201
  101. VEMURAFENIB. [Suspect]
     Active Substance: VEMURAFENIB
     Dosage: 0.04 DAYS
     Route: 048
     Dates: start: 20180220, end: 20180222
  102. MIDAZOLAM. [Concomitant]
     Active Substance: MIDAZOLAM
     Indication: RESTLESSNESS
     Dosage: 0.04 DAYS
     Route: 058
     Dates: start: 20180417, end: 20180418
  103. MIDAZOLAM. [Concomitant]
     Active Substance: MIDAZOLAM
     Route: 048
     Dates: start: 20180408, end: 20180408
  104. MIDAZOLAM. [Concomitant]
     Active Substance: MIDAZOLAM
     Dosage: 0.04 DAYS
     Route: 058
     Dates: start: 20180419, end: 20180421
  105. DIMENHYDRINAT [Concomitant]
     Active Substance: DIMENHYDRINATE
     Indication: NAUSEA
     Route: 054
     Dates: start: 20180401, end: 20180401
  106. DIMENHYDRINAT [Concomitant]
     Active Substance: DIMENHYDRINATE
     Route: 042
     Dates: start: 20180330, end: 20180331
  107. OTRIVEN [Concomitant]
     Active Substance: XYLOMETAZOLINE HYDROCHLORIDE
     Indication: DYSPNOEA
     Route: 045
     Dates: start: 20180415, end: 20180415
  108. CEFUROXIM [Concomitant]
     Active Substance: CEFUROXIME
     Indication: GROIN PAIN
     Dosage: 0.5 DAYS
     Route: 042
     Dates: start: 20180305, end: 20180305
  109. NOVALGIN [Concomitant]
     Indication: GROIN PAIN
     Dosage: 0.5 DAYS
     Route: 048
     Dates: start: 20180317, end: 20180317
  110. IBEROGAST [Concomitant]
     Active Substance: HERBALS
     Indication: NAUSEA
     Dates: start: 20180312, end: 20180315

REACTIONS (8)
  - Nervous system disorder [Not Recovered/Not Resolved]
  - Organic brain syndrome [Not Recovered/Not Resolved]
  - Disorientation [Not Recovered/Not Resolved]
  - Brain stem syndrome [Not Recovered/Not Resolved]
  - Balance disorder [Recovered/Resolved]
  - Coma [Not Recovered/Not Resolved]
  - Dysarthria [Not Recovered/Not Resolved]
  - Death [Fatal]

NARRATIVE: CASE EVENT DATE: 20180317
